FAERS Safety Report 6381761-1 (Version None)
Quarter: 2009Q3

REPORT INFORMATION
  Report Type: 
  Country: None (occurrence: None)
  Receive Date: 20090930
  Receipt Date: 20070605
  Transmission Date: 20100115
  Serious: Yes (Other)
  Sender: FDA-Public Use
  Company Number: US-ASTRAZENECA-2006UW22129

PATIENT
  Age: 44 Year
  Sex: Male
  Weight: 136.5 kg

DRUGS (15)
  1. SEROQUEL [Suspect]
     Indication: DEPRESSION
     Route: 048
     Dates: start: 19970101
  2. SEROQUEL [Suspect]
     Dosage: 50-600 MG
     Route: 048
     Dates: start: 19980101, end: 20020201
  3. SEROQUEL [Suspect]
     Route: 048
     Dates: start: 20030303
  4. ABILIFY [Concomitant]
  5. HALDOL [Concomitant]
  6. RISPERDAL [Concomitant]
  7. ZYPREXA [Concomitant]
  8. ZESTORETIC [Concomitant]
     Indication: HYPERTENSION
     Dosage: 20/12.5 MG EVERY DAY, 20/25 MG ONCE OR TWICE DAILY
     Route: 048
     Dates: start: 20010831
  9. NEURONTIN [Concomitant]
     Dosage: 400-2000 MG
     Route: 048
     Dates: start: 19990729
  10. DEPAKOTE [Concomitant]
     Dosage: 250-700 MG
     Route: 048
     Dates: start: 20011015, end: 20020201
  11. ZOLOFT [Concomitant]
     Indication: DEPRESSIVE SYMPTOM
     Dosage: 50-75 MG
     Route: 048
     Dates: start: 20000928
  12. PRILOSEC [Concomitant]
     Dosage: 20 MG DISPENSED
     Route: 048
     Dates: start: 20010928
  13. TRAZODONE [Concomitant]
     Indication: DEPRESSION
     Dosage: 75-150 MG
     Route: 048
     Dates: start: 20010607
  14. TRAZODONE [Concomitant]
     Indication: INSOMNIA
     Dosage: 75-150 MG
     Route: 048
     Dates: start: 20010607
  15. WELLBUTRIN [Concomitant]
     Route: 048
     Dates: start: 20040517, end: 20041228

REACTIONS (4)
  - DIABETES MELLITUS [None]
  - DIABETIC NEUROPATHY [None]
  - TYPE 1 DIABETES MELLITUS [None]
  - TYPE 2 DIABETES MELLITUS [None]
